FAERS Safety Report 22588941 (Version 1)
Quarter: 2023Q2

REPORT INFORMATION
  Report Type: Spontaneous
  Country: US (occurrence: US)
  Receive Date: 20230612
  Receipt Date: 20230612
  Transmission Date: 20230721
  Serious: Yes (Other)
  Sender: FDA-Public Use
  Company Number: US-APOTEX-2023AP008960

PATIENT
  Age: 9 Year
  Sex: Female
  Weight: 26.304 kg

DRUGS (4)
  1. ARIPIPRAZOLE [Interacting]
     Active Substance: ARIPIPRAZOLE
     Indication: Reactive attachment disorder
     Dosage: 1 MILLIGRAM, BID
     Route: 065
  2. ARIPIPRAZOLE [Interacting]
     Active Substance: ARIPIPRAZOLE
     Indication: Attention deficit hyperactivity disorder
  3. METHYLPHENIDATE [Interacting]
     Active Substance: METHYLPHENIDATE
     Indication: Reactive attachment disorder
     Dosage: 50 MILLIGRAM, Q.AM
     Route: 065
  4. METHYLPHENIDATE [Interacting]
     Active Substance: METHYLPHENIDATE
     Indication: Attention deficit hyperactivity disorder
     Dosage: 5 MILLIGRAM, AFTER SCHOOL HOURS
     Route: 065

REACTIONS (2)
  - Dystonia [Recovered/Resolved]
  - Drug interaction [Unknown]
